FAERS Safety Report 23370832 (Version 4)
Quarter: 2024Q2

REPORT INFORMATION
  Report Type: Spontaneous
  Country: US (occurrence: US)
  Receive Date: 20240105
  Receipt Date: 20240409
  Transmission Date: 20240716
  Serious: No
  Sender: FDA-Public Use
  Company Number: US-SA-2023SA405911

PATIENT
  Age: 36 Year
  Sex: Female
  Weight: 68.2 kg

DRUGS (2)
  1. CAPRELSA [Suspect]
     Active Substance: VANDETANIB
     Indication: Thyroid cancer
     Dosage: 300 MG, QD
     Route: 048
     Dates: start: 20230601
  2. CAPRELSA [Suspect]
     Active Substance: VANDETANIB
     Dosage: 100 MG, BID
     Dates: start: 20240106

REACTIONS (3)
  - Liver disorder [Unknown]
  - Nasal injury [Unknown]
  - Gastrointestinal disorder [Unknown]

NARRATIVE: CASE EVENT DATE: 20230101
